FAERS Safety Report 12851457 (Version 1)
Quarter: 2016Q4

REPORT INFORMATION
  Report Type: Spontaneous
  Country: US (occurrence: US)
  Receive Date: 20161014
  Receipt Date: 20161014
  Transmission Date: 20170207
  Serious: Yes (Death, Hospitalization)
  Sender: FDA-Public Use
  Company Number: None

PATIENT
  Age: 14 Year
  Sex: Male
  Weight: 55.1 kg

DRUGS (6)
  1. DAUNORUBICIN [Concomitant]
     Active Substance: DAUNORUBICIN
     Dates: end: 20140516
  2. PREDNISONE. [Concomitant]
     Active Substance: PREDNISONE
     Dates: end: 20140518
  3. VINCRISTINE SULFATE. [Concomitant]
     Active Substance: VINCRISTINE SULFATE
     Dates: end: 20140516
  4. ONCASPAR [Suspect]
     Active Substance: PEGASPARGASE
     Dates: end: 20140505
  5. METHOTREXATE. [Concomitant]
     Active Substance: METHOTREXATE
     Dates: end: 20140509
  6. CYTARABINE. [Suspect]
     Active Substance: CYTARABINE
     Dates: end: 20140430

REACTIONS (9)
  - Leukoencephalopathy [None]
  - Brain death [None]
  - Subdural haematoma [None]
  - Neuropathy peripheral [None]
  - Vomiting [None]
  - Hemiparesis [None]
  - Seizure [None]
  - Right ventricular enlargement [None]
  - Muscular weakness [None]

NARRATIVE: CASE EVENT DATE: 20140521
